FAERS Safety Report 4846327-0 (Version None)
Quarter: 2005Q4

REPORT INFORMATION
  Report Type: 
  Country: None (occurrence: None)
  Receive Date: 20051115
  Receipt Date: 20050930
  Transmission Date: 20060501
  Serious: Yes (Other)
  Sender: FDA-Public Use
  Company Number: 419914

PATIENT
  Age: 26 Year
  Sex: Female

DRUGS (4)
  1. PEGASYS [Suspect]
     Indication: HEPATITIS C
     Dosage: 180 MG 1 PER WEEK SUBCUTANEOUS
     Route: 058
     Dates: start: 20050904, end: 20050930
  2. COPEGUS [Suspect]
     Indication: HEPATITIS C
     Dosage: 1000 MG DAILY ORAL
     Route: 048
     Dates: start: 20050904
  3. VALTREX [Concomitant]
  4. PAXIL [Concomitant]

REACTIONS (1)
  - HOMICIDAL IDEATION [None]
